FAERS Safety Report 5247368-4 (Version None)
Quarter: 2007Q1

REPORT INFORMATION
  Report Type: 
  Country: None (occurrence: None)
  Receive Date: 20070216
  Receipt Date: 20070202
  Transmission Date: 20070707
  Serious: Yes (Hospitalization)
  Sender: FDA-Public Use
  Company Number: TCI2007A00561

PATIENT
  Sex: Male

DRUGS (1)
  1. ACTOS [Suspect]
     Indication: INSULIN-REQUIRING TYPE II DIABETES MELLITUS
     Route: 048

REACTIONS (3)
  - CHOLESTASIS [None]
  - DIABETES MELLITUS INADEQUATE CONTROL [None]
  - JAUNDICE CHOLESTATIC [None]
